FAERS Safety Report 7561774-4 (Version None)
Quarter: 2011Q2

REPORT INFORMATION
  Report Type: 
  Country: None (occurrence: None)
  Receive Date: 20110621
  Receipt Date: 20110616
  Transmission Date: 20111010
  Serious: Yes (Hospitalization, Other)
  Sender: FDA-Public Use
  Company Number: US-PFIZER INC-2011032290

PATIENT
  Sex: Female

DRUGS (13)
  1. DEPAKOTE [Concomitant]
     Indication: BIPOLAR DISORDER
     Dosage: UNK
     Dates: start: 20050101
  2. DEPAKOTE [Concomitant]
     Indication: ANXIETY
  3. CLONIDINE [Concomitant]
     Indication: HYPERTENSION
     Dosage: UNK
     Dates: start: 20070101
  4. HYDROCODONE [Concomitant]
     Indication: PAIN
     Dosage: UNK
     Dates: start: 20040101
  5. DEPAKOTE [Concomitant]
     Indication: DEPRESSION
  6. FERROUS SULFATE [Concomitant]
     Indication: MINERAL SUPPLEMENTATION
     Dosage: UNK
     Dates: start: 20050101
  7. CHANTIX [Suspect]
     Indication: SMOKING CESSATION THERAPY
     Dosage: STARTER AND CONTINUING PACK
     Dates: start: 20090501, end: 20091008
  8. WELLBUTRIN [Concomitant]
     Indication: DEPRESSION
     Dosage: UNK
     Dates: start: 20050101
  9. DICLOFENAC [Concomitant]
     Indication: PAIN
     Dosage: UNK
     Dates: start: 20070101
  10. WELLBUTRIN [Concomitant]
     Indication: ANXIETY
  11. LISINOPRIL [Concomitant]
     Indication: HYPERTENSION
     Dosage: UNK
     Dates: start: 20050101
  12. DICLOFENAC [Concomitant]
     Indication: ARTHRITIS
  13. ALLOPURINOL [Concomitant]
     Indication: GOUT
     Dosage: UNK
     Dates: start: 20080101

REACTIONS (9)
  - HALLUCINATION [None]
  - DIABETIC KETOACIDOSIS [None]
  - DEPRESSION [None]
  - SUICIDAL IDEATION [None]
  - CONDITION AGGRAVATED [None]
  - SUICIDE ATTEMPT [None]
  - NIGHTMARE [None]
  - ANXIETY [None]
  - AMNESIA [None]
